FAERS Safety Report 5420175-5 (Version None)
Quarter: 2007Q3

REPORT INFORMATION
  Report Type: 
  Country: None (occurrence: None)
  Receive Date: 20070820
  Receipt Date: 20070816
  Transmission Date: 20080115
  Serious: No
  Sender: FDA-Public Use
  Company Number: US-BOEHRINGER INGELHEIM PHARMACEUTICALS, INC.-2007-BP-17455BP

PATIENT
  Age: 40 Year
  Sex: Male

DRUGS (3)
  1. MICARDIS [Suspect]
     Indication: HYPERTENSION
     Route: 048
     Dates: start: 20070702
  2. TRICOR [Concomitant]
  3. OSTEO BI-FLEX [Concomitant]

REACTIONS (1)
  - DRUG SCREEN POSITIVE [None]
